FAERS Safety Report 9707870 (Version 1)
Quarter: 2013Q4

REPORT INFORMATION
  Report Type: Spontaneous
  Country: US (occurrence: None)
  Receive Date: 20131122
  Receipt Date: 20131122
  Transmission Date: 20140711
  Serious: Yes (Hospitalization)
  Sender: FDA-Public Use
  Company Number: None

PATIENT
  Age: 50 Year
  Sex: Female
  Weight: 105 kg

DRUGS (6)
  1. TERIFLUNOMIDE [Suspect]
  2. REFRESH EYE DROPS [Concomitant]
  3. GENERIC LOESTRIN [Concomitant]
  4. PREDNSIONE [Concomitant]
  5. HCTZ [Concomitant]
  6. OMEPRAZOLE [Concomitant]

REACTIONS (1)
  - Thrombosis [None]
